FAERS Safety Report 8974373 (Version 2)
Quarter: 2013Q1

REPORT INFORMATION
  Report Type: Spontaneous
  Country: BR (occurrence: BR)
  Receive Date: 20121220
  Receipt Date: 20130211
  Transmission Date: 20140127
  Serious: Yes (Hospitalization, Other)
  Sender: FDA-Public Use
  Company Number: BR-ASTELLAS-2012US012470

PATIENT
  Age: 26 Year
  Sex: Male
  Weight: 49 kg

DRUGS (52)
  1. PROGRAF [Suspect]
     Indication: PROPHYLAXIS AGAINST TRANSPLANT REJECTION
     Dosage: 3 MG, TID
     Route: 048
     Dates: start: 20030827, end: 20030904
  2. PROGRAF [Suspect]
     Dosage: 2 MG, UID/QD
     Route: 048
     Dates: start: 20030905, end: 20030915
  3. PROGRAF [Suspect]
     Dosage: 8 MG, BID
     Route: 048
     Dates: start: 20030916, end: 20031027
  4. PROGRAF [Suspect]
     Dosage: 5 MG, BID
     Route: 048
     Dates: start: 20031028, end: 20031105
  5. PROGRAF [Suspect]
     Dosage: 7 MG, BID
     Route: 048
     Dates: start: 20031106, end: 20031201
  6. PROGRAF [Suspect]
     Dosage: 5 MG, BID
     Route: 048
     Dates: start: 20031202, end: 20031211
  7. PROGRAF [Suspect]
     Dosage: 3 MG, UID/QD
     Route: 048
     Dates: start: 20031212, end: 20040512
  8. PROGRAF [Suspect]
     Dosage: 2 MG, BID
     Route: 048
     Dates: start: 20040513
  9. PROGRAF [Suspect]
     Dosage: 1.5 MG, BID
     Route: 048
     Dates: start: 20040707
  10. PROGRAF [Suspect]
     Dosage: 2 MG, BID
     Route: 048
     Dates: start: 20040906
  11. PROGRAF [Suspect]
     Dosage: 2 MG, BID
     Route: 048
     Dates: start: 20041113
  12. DACLIZUMAB [Suspect]
     Indication: PROPHYLAXIS AGAINST TRANSPLANT REJECTION
     Dosage: 113 MG, TOTAL DOSE
     Route: 042
     Dates: start: 20030827
  13. DACLIZUMAB [Suspect]
     Dosage: 60 MG, Q2W
     Route: 042
     Dates: start: 20030911, end: 20031024
  14. MYCOPHENOLATE MOFETIL [Suspect]
     Indication: PROPHYLAXIS AGAINST TRANSPLANT REJECTION
     Dosage: 1000 MG, BID
     Route: 048
     Dates: start: 20030827
  15. MYCOPHENOLATE MOFETIL [Suspect]
     Dosage: 500 MG, BID
     Route: 048
     Dates: start: 20031028, end: 20031119
  16. MYCOPHENOLATE MOFETIL [Suspect]
     Dosage: 500 MG, TID
     Route: 048
     Dates: start: 20031120
  17. METHYLPREDNISOLONE [Suspect]
     Indication: PROPHYLAXIS AGAINST TRANSPLANT REJECTION
     Dosage: 1000 MG, UNKNOWN/D
     Route: 042
     Dates: start: 20030827
  18. METHYLPREDNISOLONE [Suspect]
     Dosage: 250 MG, UNKNOWN/D
     Route: 042
     Dates: start: 20030828
  19. METHYLPREDNISOLONE [Suspect]
     Dosage: 125 MG, UID/QD
     Route: 042
     Dates: start: 20030829, end: 20030830
  20. METHYLPREDNISOLONE [Suspect]
     Dosage: 500 MG, UID/QD
     Route: 042
     Dates: start: 20030915, end: 20030920
  21. PREDNISONE [Suspect]
     Indication: PROPHYLAXIS AGAINST TRANSPLANT REJECTION
     Dosage: 60 MG, UID/QD
     Route: 048
     Dates: start: 20030830
  22. PREDNISONE [Suspect]
     Dosage: 40 MG, UID/QD
     Route: 048
     Dates: start: 20030909, end: 20030911
  23. PREDNISONE [Suspect]
     Dosage: 30 MG, UID/QD
     Route: 048
     Dates: start: 20030912, end: 20031012
  24. PREDNISONE [Suspect]
     Dosage: 10 MG, UID/QD
     Route: 048
     Dates: start: 20031013
  25. PREDNISONE [Suspect]
     Dosage: 5 MG, UID/QD
     Route: 048
     Dates: start: 20031202
  26. METHYLDOPA [Concomitant]
     Indication: PRODUCT USED FOR UNKNOWN INDICATION
     Dosage: 500 MG, TID
     Dates: start: 20030828
  27. LASIX                              /00032601/ [Concomitant]
     Indication: PRODUCT USED FOR UNKNOWN INDICATION
     Dosage: 40 MG, TID
     Route: 048
     Dates: start: 20030907
  28. RANITIDINE [Concomitant]
     Indication: PRODUCT USED FOR UNKNOWN INDICATION
     Dosage: 150 MG, BID
     Route: 048
     Dates: start: 20030827
  29. OMEPRAZOLE [Concomitant]
     Indication: PRODUCT USED FOR UNKNOWN INDICATION
     Dosage: 20 MG, UNKNOWN/D
     Route: 048
     Dates: start: 20030829
  30. NIFEDIPINE [Concomitant]
     Indication: PRODUCT USED FOR UNKNOWN INDICATION
     Dosage: 20 MG, TID
     Route: 048
     Dates: start: 20030828
  31. NIFEDIPINE [Concomitant]
     Dosage: 20 MG, QID
     Route: 048
     Dates: start: 20030907
  32. PROPRANOLOL [Concomitant]
     Indication: PRODUCT USED FOR UNKNOWN INDICATION
     Dosage: 40 MG, BID
     Route: 048
     Dates: start: 20030429
  33. PROPRANOLOL [Concomitant]
     Dosage: 40 MG, TID
     Route: 048
     Dates: start: 20030905
  34. PROPRANOLOL [Concomitant]
     Dosage: 40 MG, BID
     Route: 048
     Dates: start: 20031212
  35. PROPRANOLOL [Concomitant]
     Dosage: 20 MG, BID
     Route: 048
     Dates: start: 20040402
  36. PROPRANOLOL [Concomitant]
     Dosage: 20 MG, BID
     Route: 048
     Dates: start: 20050429
  37. CIPROFLOXACIN [Concomitant]
     Indication: PRODUCT USED FOR UNKNOWN INDICATION
     Dosage: 250 MG, TID
     Route: 048
  38. CIPROFLOXACIN [Concomitant]
     Dosage: 250 MG, TID
     Route: 048
     Dates: start: 20031007
  39. CIPROFLOXACIN [Concomitant]
     Dosage: 200 MG, BID
     Route: 042
     Dates: start: 20030905
  40. HYDRALAZINE [Concomitant]
     Indication: PRODUCT USED FOR UNKNOWN INDICATION
     Dosage: 25 MG, BID
     Route: 048
     Dates: start: 20030912
  41. MINOXIDIL [Concomitant]
     Indication: PRODUCT USED FOR UNKNOWN INDICATION
     Dosage: 5 MG, BID
     Route: 048
     Dates: start: 20030829
  42. MINOXIDIL [Concomitant]
     Dosage: 10 MG, BID
     Route: 048
     Dates: start: 20030914
  43. NYSTATIN [Concomitant]
     Indication: PRODUCT USED FOR UNKNOWN INDICATION
     Dosage: 10 ML, Q6 HOURS
     Route: 048
     Dates: start: 20030828
  44. DIAZEPAM [Concomitant]
     Indication: PRODUCT USED FOR UNKNOWN INDICATION
     Dosage: UNK
     Route: 048
     Dates: start: 20030930
  45. AMOXICILLIN [Concomitant]
     Indication: PRODUCT USED FOR UNKNOWN INDICATION
     Dosage: 500 MG, TID
     Route: 048
     Dates: start: 20040402
  46. ATENSINA [Concomitant]
     Indication: PRODUCT USED FOR UNKNOWN INDICATION
     Dosage: 0.1 MG, BID
     Route: 048
     Dates: start: 20030827
  47. ATENSINA [Concomitant]
     Dosage: 0.2 MG, TID
     Route: 048
     Dates: start: 20030429
  48. AZTREONAM [Concomitant]
     Indication: PRODUCT USED FOR UNKNOWN INDICATION
     Dosage: 1 G, BID
     Route: 042
     Dates: start: 20030916
  49. BACTRIM [Concomitant]
     Indication: PRODUCT USED FOR UNKNOWN INDICATION
     Dosage: 40 MG, UID/QD
     Route: 048
     Dates: start: 20040628
  50. CAPTOPRIL [Concomitant]
     Indication: PRODUCT USED FOR UNKNOWN INDICATION
     Dosage: 25 MG, QID
     Route: 048
     Dates: start: 20030830
  51. CAPTOPRIL [Concomitant]
     Dosage: 12.5 MG, UNKNOWN/D
     Route: 048
     Dates: start: 20050104
  52. CEFOTAXIME [Concomitant]
     Indication: PRODUCT USED FOR UNKNOWN INDICATION
     Dosage: 500 MG, TID
     Route: 048
     Dates: start: 20030827

REACTIONS (5)
  - Urinary fistula [Recovered/Resolved]
  - Urinary tract infection [Recovered/Resolved]
  - Urosepsis [Unknown]
  - Sinusitis [Recovered/Resolved]
  - Renal tubular necrosis [Recovered/Resolved]
